FAERS Safety Report 7515866-6 (Version None)
Quarter: 2011Q2

REPORT INFORMATION
  Report Type: 
  Country: None (occurrence: None)
  Receive Date: 20110425
  Receipt Date: 20101110
  Transmission Date: 20111010
  Serious: Yes (Other)
  Sender: FDA-Public Use
  Company Number: MC201000386

PATIENT

DRUGS (1)
  1. ANGIOMAX [Suspect]
     Indication: PERCUTANEOUS CORONARY INTERVENTION
     Dosage: INTRAVENOUS
     Route: 042
     Dates: start: 20100101, end: 20100101

REACTIONS (2)
  - THROMBOSIS [None]
  - THROMBOSIS IN DEVICE [None]
